FAERS Safety Report 16306381 (Version 2)
Quarter: 2021Q1

REPORT INFORMATION
  Report Type: Spontaneous
  Country: US (occurrence: US)
  Receive Date: 20190513
  Receipt Date: 20210302
  Transmission Date: 20210419
  Serious: Yes (Other)
  Sender: FDA-Public Use
  Company Number: US-ASTRAZENECA-2019SE63678

PATIENT
  Age: 52 Year
  Sex: Male

DRUGS (65)
  1. NEXIUM [Suspect]
     Active Substance: ESOMEPRAZOLE MAGNESIUM
     Indication: GASTROOESOPHAGEAL REFLUX DISEASE
     Route: 048
     Dates: start: 2004, end: 2012
  2. PRILOSEC [Suspect]
     Active Substance: OMEPRAZOLE MAGNESIUM
     Indication: GASTROOESOPHAGEAL REFLUX DISEASE
     Dosage: GENERIC
     Route: 065
     Dates: start: 2004, end: 2006
  3. MECLIZINE [Concomitant]
     Active Substance: MECLIZINE HYDROCHLORIDE
  4. FLUCONAZOLE. [Concomitant]
     Active Substance: FLUCONAZOLE
  5. DIAZEPAM. [Concomitant]
     Active Substance: DIAZEPAM
  6. TAMSULOSIN [Concomitant]
     Active Substance: TAMSULOSIN
  7. LANTUS [Concomitant]
     Active Substance: INSULIN GLARGINE
  8. NORVASC [Concomitant]
     Active Substance: AMLODIPINE BESYLATE
     Indication: HYPERTENSION
     Dates: start: 2004
  9. VENLAFAXINE [Concomitant]
     Active Substance: VENLAFAXINE HYDROCHLORIDE
  10. AURYXIA [Concomitant]
     Active Substance: TETRAFERRIC TRICITRATE DECAHYDRATE
  11. MICONAZOLE. [Concomitant]
     Active Substance: MICONAZOLE
  12. ZINC OXIDE. [Concomitant]
     Active Substance: ZINC OXIDE
  13. TRAMADOL. [Concomitant]
     Active Substance: TRAMADOL
  14. CEPHALEXIN. [Concomitant]
     Active Substance: CEPHALEXIN
  15. SILVER SULFADIAZINE. [Concomitant]
     Active Substance: SILVER SULFADIAZINE
  16. LIDOCAIN [Concomitant]
     Active Substance: LIDOCAINE
  17. LANTHANUM [Concomitant]
     Active Substance: LANTHANUM
  18. NEXIUM [Suspect]
     Active Substance: ESOMEPRAZOLE MAGNESIUM
     Indication: GASTROOESOPHAGEAL REFLUX DISEASE
     Route: 048
     Dates: start: 20120221
  19. PRILOSEC [Suspect]
     Active Substance: OMEPRAZOLE MAGNESIUM
     Indication: GASTROOESOPHAGEAL REFLUX DISEASE
     Route: 048
  20. SIMVASTATIN. [Concomitant]
     Active Substance: SIMVASTATIN
  21. HYDROCODONE/ACETAMINOPHEN [Concomitant]
     Active Substance: ACETAMINOPHEN\HYDROCODONE
  22. NIFEDIPINE. [Concomitant]
     Active Substance: NIFEDIPINE
  23. DEXAMETHASONE. [Concomitant]
     Active Substance: DEXAMETHASONE
  24. TERBINAFINE. [Concomitant]
     Active Substance: TERBINAFINE
  25. LISINOPRIL. [Concomitant]
     Active Substance: LISINOPRIL
  26. BUMEX [Concomitant]
     Active Substance: BUMETANIDE
  27. RANEXA [Concomitant]
     Active Substance: RANOLAZINE
  28. NAPROXEN. [Concomitant]
     Active Substance: NAPROXEN
     Indication: PAIN
     Dates: start: 2015
  29. METOPROLOL. [Concomitant]
     Active Substance: METOPROLOL
  30. MIDODRINE [Concomitant]
     Active Substance: MIDODRINE
  31. CAVERJECT [Concomitant]
     Active Substance: ALPROSTADIL
  32. NAPROXEN. [Concomitant]
     Active Substance: NAPROXEN
  33. AZITHROMYCIN ANHYDROUS. [Concomitant]
     Active Substance: AZITHROMYCIN ANHYDROUS
  34. CIPROFLOXACIN. [Concomitant]
     Active Substance: CIPROFLOXACIN
  35. DULOXETINE. [Concomitant]
     Active Substance: DULOXETINE
  36. CARVEDILOL. [Concomitant]
     Active Substance: CARVEDILOL
  37. BIDIL [Concomitant]
     Active Substance: HYDRALAZINE HYDROCHLORIDE\ISOSORBIDE DINITRATE
  38. COREG [Concomitant]
     Active Substance: CARVEDILOL
  39. MULTIVITAMINS [Concomitant]
     Active Substance: VITAMINS
  40. ROPINIROLE. [Concomitant]
     Active Substance: ROPINIROLE
  41. LYRICA [Concomitant]
     Active Substance: PREGABALIN
  42. SULFAMETH/TMP [Concomitant]
     Active Substance: SULFAMETHOXAZOLE\TRIMETHOPRIM
  43. CLINDAMYCIN/CLOBETASOL [Concomitant]
  44. PREVACID [Suspect]
     Active Substance: LANSOPRAZOLE
     Indication: GASTROOESOPHAGEAL REFLUX DISEASE
     Route: 065
     Dates: start: 2004, end: 2006
  45. PREGABALIN. [Concomitant]
     Active Substance: PREGABALIN
  46. DIALYVITE [Concomitant]
     Active Substance: ASCORBIC ACID\BIOTIN\CALCIUM PANTOTHENATE\COBALAMIN\FOLIC ACID\NIACINAMIDE\PYRIDOXINE HYDROCHLORIDE\RIBOFLAVIN\THIAMINE MONONITRATE
  47. OXYCODONE [Concomitant]
     Active Substance: OXYCODONE
  48. AMOX?CLAV [Concomitant]
     Active Substance: AMOXICILLIN\CLAVULANATE POTASSIUM
  49. WARFARIN [Concomitant]
     Active Substance: WARFARIN
  50. EFFEXOR [Concomitant]
     Active Substance: VENLAFAXINE HYDROCHLORIDE
  51. ALLOPURINOL. [Concomitant]
     Active Substance: ALLOPURINOL
  52. RENVELLA [Concomitant]
  53. FERRITIN [Concomitant]
     Active Substance: FERRITIN
  54. MUPIROCIN. [Concomitant]
     Active Substance: MUPIROCIN
  55. METHYLPREDNISOLONE. [Concomitant]
     Active Substance: METHYLPREDNISOLONE
  56. VITAMIN B COMPLEX [Concomitant]
     Active Substance: CYANOCOBALAMIN\DEXPANTHENOL\NIACINAMIDE\PYRIDOXINE HYDROCHLORIDE\RIBOFLAVIN 5^-PHOSPHATE SODIUM\THIAMINE HYDROCHLORIDE\VITAMIN B COMPLEX
  57. SORBITOL. [Concomitant]
     Active Substance: SORBITOL
  58. COLCHICINE. [Concomitant]
     Active Substance: COLCHICINE
  59. HYDRALAZINE [Concomitant]
     Active Substance: HYDRALAZINE HYDROCHLORIDE
  60. BUMETANIDE. [Concomitant]
     Active Substance: BUMETANIDE
  61. BUTALBITAL/ACETA/CAFFEIN [Concomitant]
  62. CLINDAMYCIN. [Concomitant]
     Active Substance: CLINDAMYCIN
  63. CYCLOBENZAPRINE. [Concomitant]
     Active Substance: CYCLOBENZAPRINE
  64. HUMALOG [Concomitant]
     Active Substance: INSULIN LISPRO
  65. ISORDIL [Concomitant]
     Active Substance: ISOSORBIDE DINITRATE

REACTIONS (5)
  - Nephrogenic anaemia [Unknown]
  - Renal failure [Unknown]
  - Chronic kidney disease [Not Recovered/Not Resolved]
  - End stage renal disease [Unknown]
  - Hyperparathyroidism secondary [Unknown]

NARRATIVE: CASE EVENT DATE: 2006
